FAERS Safety Report 13959563 (Version 2)
Quarter: 2018Q1

REPORT INFORMATION
  Report Type: Spontaneous
  Country: US (occurrence: US)
  Receive Date: 20170911
  Receipt Date: 20180125
  Transmission Date: 20180508
  Serious: Yes (Hospitalization)
  Sender: FDA-Public Use
  Company Number: US-DSJP-DSU-2017-135999

PATIENT

DRUGS (1)
  1. BENICAR [Suspect]
     Active Substance: OLMESARTAN MEDOXOMIL
     Indication: PRODUCT USED FOR UNKNOWN INDICATION
     Dosage: 20 MG, QD
     Route: 048
     Dates: start: 20060314, end: 20151231

REACTIONS (9)
  - Sprue-like enteropathy [Recovered/Resolved]
  - Hiatus hernia [Not Recovered/Not Resolved]
  - Diverticulum [Not Recovered/Not Resolved]
  - Gastrooesophageal reflux disease [Unknown]
  - Large intestine polyp [Unknown]
  - Diverticulitis [Recovered/Resolved]
  - Gastrointestinal haemorrhage [Recovered/Resolved]
  - Haemorrhoids [Unknown]
  - Anaemia [Unknown]

NARRATIVE: CASE EVENT DATE: 2013
